FAERS Safety Report 14618480 (Version 4)
Quarter: 2018Q3

REPORT INFORMATION
  Report Type: Spontaneous
  Country: GB (occurrence: GB)
  Receive Date: 20180309
  Receipt Date: 20180724
  Transmission Date: 20181010
  Serious: Yes (Hospitalization, Other)
  Sender: FDA-Public Use
  Company Number: GB-BRISTOL-MYERS SQUIBB COMPANY-BMS-2018-021194

PATIENT
  Sex: Male

DRUGS (2)
  1. YERVOY [Suspect]
     Active Substance: IPILIMUMAB
     Indication: MALIGNANT MELANOMA
     Route: 065
  2. OPDIVO [Suspect]
     Active Substance: NIVOLUMAB
     Indication: MALIGNANT MELANOMA
     Route: 065

REACTIONS (11)
  - Hypothyroidism [Unknown]
  - Atrial fibrillation [Unknown]
  - Diabetes mellitus [Unknown]
  - Loss of consciousness [Unknown]
  - Hypophysitis [Unknown]
  - Neuropathy peripheral [Unknown]
  - Thyrotoxic crisis [Unknown]
  - Cardiac arrest [Unknown]
  - Electrolyte imbalance [Unknown]
  - Supraventricular tachycardia [Unknown]
  - Thyroiditis [Unknown]
